FAERS Safety Report 9521910 (Version 1)
Quarter: 2013Q3

REPORT INFORMATION
  Report Type: Spontaneous
  Country: JP (occurrence: JP)
  Receive Date: 20130913
  Receipt Date: 20130913
  Transmission Date: 20140515
  Serious: Yes (Hospitalization)
  Sender: FDA-Public Use
  Company Number: PHHY2013JP101520

PATIENT
  Age: 67 Year
  Sex: Male

DRUGS (2)
  1. DIOVAN [Suspect]
     Dosage: 0.5 DF (20MG), BID (HALF TABLET IN THE MORNING AND AT THE OTHER HALF AT NOON)
     Route: 048
  2. BAYASPIRIN [Concomitant]

REACTIONS (4)
  - Transient ischaemic attack [Unknown]
  - Blood pressure decreased [Unknown]
  - Dizziness [Unknown]
  - Wrong technique in drug usage process [Unknown]
